FAERS Safety Report 24097215 (Version 5)
Quarter: 2024Q4

REPORT INFORMATION
  Report Type: Spontaneous
  Country: US (occurrence: US)
  Receive Date: 20240716
  Receipt Date: 20241007
  Transmission Date: 20250115
  Serious: No
  Sender: SANOFI AVENTIS
  Company Number: US-SA-SAC20240715000481

PATIENT
  Age: 66 Year
  Sex: Male

DRUGS (37)
  1. DUPIXENT [Suspect]
     Active Substance: DUPILUMAB
     Indication: Dermatitis atopic
     Dosage: 300 MG, QOW
     Route: 058
     Dates: start: 20240625, end: 2024
  2. DUPIXENT [Suspect]
     Active Substance: DUPILUMAB
     Dosage: 300 MG, QOW
     Route: 058
     Dates: start: 2024
  3. AMLODIPINE [Concomitant]
     Active Substance: AMLODIPINE BESYLATE
     Dosage: UNK
  4. AMLODIPINE [Concomitant]
     Active Substance: AMLODIPINE BESYLATE
  5. ASPIRIN [Concomitant]
     Active Substance: ASPIRIN
     Dosage: UNK
  6. ATORVASTATIN [Concomitant]
     Active Substance: ATORVASTATIN
     Dosage: 10 MG
  7. ATORVASTATIN [Concomitant]
     Active Substance: ATORVASTATIN
     Dosage: 20 MG
  8. CLONAZEPAM [Concomitant]
     Active Substance: CLONAZEPAM
     Dosage: UNK
  9. CLONAZEPAM [Concomitant]
     Active Substance: CLONAZEPAM
  10. DOXAZOSIN [Concomitant]
     Active Substance: DOXAZOSIN\DOXAZOSIN MESYLATE
     Dosage: UNK
  11. DOXAZOSIN [Concomitant]
     Active Substance: DOXAZOSIN\DOXAZOSIN MESYLATE
  12. ESZOPICLONE [Concomitant]
     Active Substance: ESZOPICLONE
     Dosage: UNK
  13. ESZOPICLONE [Concomitant]
     Active Substance: ESZOPICLONE
  14. FINASTERIDE [Concomitant]
     Active Substance: FINASTERIDE
     Dosage: UNK
  15. FINASTERIDE [Concomitant]
     Active Substance: FINASTERIDE
  16. FLUOCINONIDE [Concomitant]
     Active Substance: FLUOCINONIDE
     Dosage: UNK
  17. FLUOCINONIDE [Concomitant]
     Active Substance: FLUOCINONIDE
  18. LEXAPRO [Concomitant]
     Active Substance: ESCITALOPRAM OXALATE
     Dosage: UNK
  19. LEXAPRO [Concomitant]
     Active Substance: ESCITALOPRAM OXALATE
  20. LISINOPRIL [Concomitant]
     Active Substance: LISINOPRIL
     Dosage: 10 MG
  21. LISINOPRIL [Concomitant]
     Active Substance: LISINOPRIL
     Dosage: 20 UNK
  22. LORATADINE [Concomitant]
     Active Substance: LORATADINE
     Dosage: UNK
  23. LORATADINE [Concomitant]
     Active Substance: LORATADINE
  24. LUNESTA [Concomitant]
     Active Substance: ESZOPICLONE
     Dosage: UNK
  25. LUNESTA [Concomitant]
     Active Substance: ESZOPICLONE
  26. MOMETASONE [Concomitant]
     Active Substance: MOMETASONE
     Dosage: UNK
  27. MOMETASONE [Concomitant]
     Active Substance: MOMETASONE
  28. MONTELUKAST [Concomitant]
     Active Substance: MONTELUKAST
     Dosage: UNK
  29. MONTELUKAST [Concomitant]
     Active Substance: MONTELUKAST
  30. RINVOQ [Concomitant]
     Active Substance: UPADACITINIB
     Dosage: UNK
  31. RINVOQ [Concomitant]
     Active Substance: UPADACITINIB
  32. XOLAIR [Concomitant]
     Active Substance: OMALIZUMAB
     Dosage: UNK
  33. METHYLPREDNISOLONE [Concomitant]
     Active Substance: METHYLPREDNISOLONE
     Dosage: UNK
  34. METHYLPREDNISOLONE [Concomitant]
     Active Substance: METHYLPREDNISOLONE
  35. TRIAMCINOLONE ACETONIDE [Concomitant]
     Active Substance: TRIAMCINOLONE ACETONIDE
     Dosage: UNK
  36. TRIAMCINOLONE [Concomitant]
     Active Substance: TRIAMCINOLONE
     Dosage: UNK
  37. CIBINQO [Concomitant]
     Active Substance: ABROCITINIB
     Dosage: UNK

REACTIONS (6)
  - Gastritis bacterial [Not Recovered/Not Resolved]
  - Sleep disorder due to a general medical condition [Not Recovered/Not Resolved]
  - Abdominal pain upper [Not Recovered/Not Resolved]
  - Muscle spasms [Not Recovered/Not Resolved]
  - Vomiting [Not Recovered/Not Resolved]
  - Cholecystectomy [Unknown]

NARRATIVE: CASE EVENT DATE: 20240101
